FAERS Safety Report 7577663-5 (Version None)
Quarter: 2011Q2

REPORT INFORMATION
  Report Type: 
  Country: None (occurrence: None)
  Receive Date: 20110628
  Receipt Date: 20110620
  Transmission Date: 20111010
  Serious: Yes (Other)
  Sender: FDA-Public Use
  Company Number: US-B.I. PHARMACEUTICALS,INC./RIDGEFIELD-2011-BP-16229BP

PATIENT
  Age: 64 Year
  Sex: Male

DRUGS (1)
  1. PRADAXA [Suspect]
     Indication: ATRIAL FIBRILLATION
     Route: 048
     Dates: start: 20110401, end: 20110501

REACTIONS (12)
  - INSOMNIA [None]
  - ECONOMIC PROBLEM [None]
  - PSYCHOTIC BEHAVIOUR [None]
  - RECTAL HAEMORRHAGE [None]
  - FALL [None]
  - LOGORRHOEA [None]
  - WEIGHT DECREASED [None]
  - LIBIDO INCREASED [None]
  - IMPULSIVE BEHAVIOUR [None]
  - BIPOLAR DISORDER [None]
  - DIARRHOEA [None]
  - SCREAMING [None]
